FAERS Safety Report 13104954 (Version 1)
Quarter: 2017Q1

REPORT INFORMATION
  Report Type: Spontaneous
  Country: US (occurrence: US)
  Receive Date: 20170111
  Receipt Date: 20170111
  Transmission Date: 20170428
  Serious: No
  Sender: FDA-Public Use
  Company Number: US-GLAXOSMITHKLINE-US2017002518

PATIENT
  Age: 42 Year
  Sex: Female

DRUGS (7)
  1. LAMOTRIGINE ORODISPERSIBLE TABLET [Suspect]
     Active Substance: LAMOTRIGINE
     Indication: DEPRESSION
     Dosage: 200 MG, 1D
     Route: 048
     Dates: start: 2012
  2. LAMOTRIGINE ORODISPERSIBLE TABLET [Suspect]
     Active Substance: LAMOTRIGINE
     Indication: INSOMNIA
  3. ESCITALOPRAM [Concomitant]
     Active Substance: ESCITALOPRAM OXALATE
  4. LORATIDINE [Concomitant]
     Active Substance: LORATADINE
  5. LAMOTRIGINE ORODISPERSIBLE TABLET [Suspect]
     Active Substance: LAMOTRIGINE
     Indication: ANXIETY
  6. TRAZODONE [Concomitant]
     Active Substance: TRAZODONE HYDROCHLORIDE
  7. ESTRADIOL. [Concomitant]
     Active Substance: ESTRADIOL

REACTIONS (5)
  - Road traffic accident [Unknown]
  - Stress [Unknown]
  - Drug interaction [Unknown]
  - Chest pain [Unknown]
  - Product use issue [Unknown]

NARRATIVE: CASE EVENT DATE: 20160110
